FAERS Safety Report 6237893-1 (Version None)
Quarter: 2009Q2

REPORT INFORMATION
  Report Type: 
  Country: None (occurrence: None)
  Receive Date: 20090620
  Receipt Date: 20090608
  Transmission Date: 20091009
  Serious: Yes (Hospitalization)
  Sender: FDA-Public Use
  Company Number: KR-MYLANLABS-2009S1010113

PATIENT
  Age: 51 Year
  Sex: Male

DRUGS (4)
  1. METFORMIN HCL [Suspect]
     Indication: HYPERGLYCAEMIA
     Dosage: 850 MG/DAY
  2. INSULIN [Concomitant]
     Indication: DIABETES MELLITUS
  3. AMLODIPINE [Concomitant]
     Dosage: 10MG
  4. ASPIRIN [Concomitant]
     Dosage: 100MG

REACTIONS (1)
  - ENCEPHALOPATHY [None]
